FAERS Safety Report 9779235 (Version 1)
Quarter: 2013Q4

REPORT INFORMATION
  Report Type: Spontaneous
  Country: US (occurrence: US)
  Receive Date: 20131223
  Receipt Date: 20131223
  Transmission Date: 20140711
  Serious: Yes (Life-Threatening, Other)
  Sender: FDA-Public Use
  Company Number: US-BAYER-2013-153962

PATIENT
  Age: 61 Year
  Sex: Male

DRUGS (1)
  1. ALEVE TABLET [Suspect]
     Indication: BACK PAIN
     Dosage: 1 -2 TABLETS AT ONCE
     Route: 048

REACTIONS (3)
  - Faeces discoloured [Recovered/Resolved]
  - Gastric haemorrhage [Recovered/Resolved]
  - Enterocolitis infectious [None]
